FAERS Safety Report 10149022 (Version 2)
Quarter: 2014Q2

REPORT INFORMATION
  Report Type: Spontaneous
  Country: US (occurrence: US)
  Receive Date: 20140502
  Receipt Date: 20140619
  Transmission Date: 20141212
  Serious: Yes (Other)
  Sender: FDA-Public Use
  Company Number: US-JNJFOC-20140417226

PATIENT
  Age: 59 Year
  Sex: Female
  Weight: 68.04 kg

DRUGS (11)
  1. REMICADE [Suspect]
     Indication: PRODUCT USED FOR UNKNOWN INDICATION
     Route: 042
     Dates: start: 20140402, end: 20140416
  2. TYLENOL [Suspect]
     Route: 065
  3. TYLENOL [Suspect]
     Indication: PREMEDICATION
     Route: 065
     Dates: start: 201404
  4. CLARITIN [Concomitant]
     Indication: PREMEDICATION
     Route: 065
  5. FOLIC ACID [Concomitant]
     Route: 065
  6. AMBIEN [Concomitant]
     Route: 065
  7. VITAMIN D [Concomitant]
     Route: 065
  8. VICODIN [Concomitant]
     Dosage: 500 MG
     Route: 065
  9. METHOTREXATE [Concomitant]
     Route: 065
  10. PREMARIN [Concomitant]
     Route: 065
  11. CALCIUM [Concomitant]
     Route: 065

REACTIONS (2)
  - Anaphylactoid reaction [Recovered/Resolved]
  - Infusion related reaction [Unknown]
